FAERS Safety Report 10253128 (Version 3)
Quarter: 2015Q4

REPORT INFORMATION
  Report Type: Spontaneous
  Country: US (occurrence: US)
  Receive Date: 20140623
  Receipt Date: 20151106
  Transmission Date: 20160304
  Serious: Yes (Other)
  Sender: FDA-Public Use
  Company Number: US-GLAXOSMITHKLINE-A1077921A

PATIENT
  Sex: Female

DRUGS (2)
  1. ADVAIR HFA [Suspect]
     Active Substance: FLUTICASONE PROPIONATE\SALMETEROL XINAFOATE
     Indication: DYSPNOEA
     Dosage: UNK
     Dates: start: 20141212
  2. FLOVENT [Suspect]
     Active Substance: FLUTICASONE PROPIONATE
     Indication: PRODUCT USED FOR UNKNOWN INDICATION
     Dosage: 44 MCG AND 110 MCG, UNKNOWN DOSING
     Route: 065
     Dates: start: 20130618

REACTIONS (5)
  - Therapy cessation [Unknown]
  - Malaise [Unknown]
  - Myocardial infarction [Unknown]
  - Stress [Unknown]
  - Memory impairment [Unknown]
